FAERS Safety Report 25295082 (Version 1)
Quarter: 2025Q2

REPORT INFORMATION
  Report Type: Spontaneous
  Country: US (occurrence: US)
  Receive Date: 20250511
  Receipt Date: 20250511
  Transmission Date: 20250716
  Serious: No
  Sender: SANOFI AVENTIS
  Company Number: US-SA-2025SA129241

PATIENT
  Age: 6 Year
  Sex: Female

DRUGS (1)
  1. DUPIXENT [Suspect]
     Active Substance: DUPILUMAB
     Indication: Dermatitis atopic
     Dosage: 300 MG, Q4W, 1 INJECTION EVERY 4 WEEKS

REACTIONS (4)
  - Pyrexia [Unknown]
  - Injection site pain [Unknown]
  - Dermatitis atopic [Unknown]
  - Oral herpes [Unknown]
